FAERS Safety Report 8065698-8 (Version None)
Quarter: 2012Q1

REPORT INFORMATION
  Report Type: 
  Country: None (occurrence: None)
  Receive Date: 20120124
  Receipt Date: 20120119
  Transmission Date: 20120608
  Serious: Yes (Other)
  Sender: FDA-Public Use
  Company Number: US-PFIZER INC-2012016204

PATIENT
  Sex: Female
  Weight: 54.422 kg

DRUGS (11)
  1. CELEBREX [Concomitant]
     Dosage: UNK
  2. NORVASC [Suspect]
     Indication: HYPERTENSION
     Dosage: 10 MG, DAILY
     Route: 048
     Dates: start: 20110101
  3. LISINOPRIL [Suspect]
     Indication: HYPERTENSION
     Dosage: UNK
  4. ALPRAZOLAM [Concomitant]
     Indication: STRESS
     Dosage: 1 MG, 3X/DAY
  5. REMERON [Suspect]
     Dosage: UNK
  6. HYDROCHLOROTHIAZIDE [Concomitant]
     Indication: HYPERTENSION
     Dosage: 25 MG, DAILY
  7. GABAPENTIN [Concomitant]
     Indication: NEUROPATHY PERIPHERAL
     Dosage: 100 MG, 3X/DAY
  8. VIOXX [Concomitant]
     Dosage: UNK
  9. CITALOPRAM [Concomitant]
     Indication: NERVOUS SYSTEM DISORDER
     Dosage: 20 MG, DAILY
  10. PROAIR HFA [Concomitant]
     Indication: CHRONIC OBSTRUCTIVE PULMONARY DISEASE
     Dosage: 2 PUFFS, AS NEEDED
  11. ACETAMINOPHEN AND HYDROCODONE BITARTRATE [Concomitant]
     Indication: PAIN
     Dosage: 10/500 MG THREE TIMES A DAY

REACTIONS (5)
  - NEOPLASM MALIGNANT [None]
  - BLOOD POTASSIUM DECREASED [None]
  - DRUG ADMINISTRATION ERROR [None]
  - AORTIC OCCLUSION [None]
  - GASTRIC DISORDER [None]
